FAERS Safety Report 15354692 (Version 2)
Quarter: 2019Q4

REPORT INFORMATION
  Report Type: Spontaneous
  Country: GB (occurrence: GB)
  Receive Date: 20180906
  Receipt Date: 20191120
  Transmission Date: 20200122
  Serious: Yes (Other)
  Sender: FDA-Public Use
  Company Number: GB-DRREDDYS-GER/UKI/18/0103692

PATIENT
  Age: 90 Year
  Sex: Female
  Weight: 70 kg

DRUGS (1)
  1. OMEPRAZOLE. [Suspect]
     Active Substance: OMEPRAZOLE
     Indication: PRODUCT USED FOR UNKNOWN INDICATION

REACTIONS (3)
  - Swelling [Recovering/Resolving]
  - Dyspnoea [Recovering/Resolving]
  - Feeling abnormal [Recovering/Resolving]
